FAERS Safety Report 4284652-5 (Version None)
Quarter: 2004Q1

REPORT INFORMATION
  Report Type: 
  Country: None (occurrence: None)
  Receive Date: 20040130
  Receipt Date: 20040123
  Transmission Date: 20041129
  Serious: Yes (Death)
  Sender: FDA-Public Use
  Company Number: 2004AP00329

PATIENT
  Age: 52 Year
  Sex: Female

DRUGS (1)
  1. IRESSA [Suspect]
     Dosage: 250 MG DAILY

REACTIONS (1)
  - ACUTE RESPIRATORY FAILURE [None]
